FAERS Safety Report 25637402 (Version 1)
Quarter: 2025Q3

REPORT INFORMATION
  Report Type: Report from Study
  Country: ZA (occurrence: ZA)
  Receive Date: 20250804
  Receipt Date: 20250804
  Transmission Date: 20251021
  Serious: Yes (Other)
  Sender: ROCHE
  Company Number: ZA-ROCHE-10000202999

PATIENT
  Sex: Female

DRUGS (2)
  1. OCREVUS [Suspect]
     Active Substance: OCRELIZUMAB
     Indication: Primary progressive multiple sclerosis
     Dosage: THEREAFTER 600MG EVERY 6 MONTHS
     Route: 042
     Dates: start: 20230718
  2. OCREVUS [Suspect]
     Active Substance: OCRELIZUMAB
     Dosage: THEREAFTER 600MG EVERY 6 MONTHS
     Route: 042

REACTIONS (17)
  - Magnetic resonance imaging abnormal [Unknown]
  - Intervertebral disc degeneration [Unknown]
  - Ascites [Unknown]
  - Intervertebral disc space narrowing [Unknown]
  - Facet joint syndrome [Unknown]
  - Vertebral foraminal stenosis [Unknown]
  - Spinal stenosis [Unknown]
  - Lumbar spinal stenosis [Unknown]
  - Ligamentum flavum hypertrophy [Unknown]
  - Intervertebral disc protrusion [Unknown]
  - Scar [Unknown]
  - Fibrosis [Unknown]
  - Malaise [Unknown]
  - Hemiparesis [Unknown]
  - Headache [Unknown]
  - Back pain [Unknown]
  - Multiple sclerosis relapse [Unknown]
